FAERS Safety Report 4477111-8 (Version None)
Quarter: 2004Q4

REPORT INFORMATION
  Report Type: 
  Country: None (occurrence: None)
  Receive Date: 20041018
  Receipt Date: 20040610
  Transmission Date: 20050328
  Serious: Yes (Other)
  Sender: FDA-Public Use
  Company Number: PHBS2004JP07693

PATIENT
  Age: 54 Year
  Sex: Male

DRUGS (2)
  1. LUDIOMIL [Suspect]
     Route: 048
  2. TETRAMIDE [Suspect]
     Route: 065

REACTIONS (4)
  - DRUG ERUPTION [None]
  - DRUG HYPERSENSITIVITY [None]
  - INFLUENZA LIKE ILLNESS [None]
  - WHITE BLOOD CELL COUNT INCREASED [None]
